FAERS Safety Report 10233385 (Version 2)
Quarter: 2014Q3

REPORT INFORMATION
  Report Type: Spontaneous
  Country: US (occurrence: US)
  Receive Date: 20140612
  Receipt Date: 20140715
  Transmission Date: 20150326
  Serious: No
  Sender: FDA-Public Use
  Company Number: US-PFIZER INC-2014157376

PATIENT
  Age: 83 Year
  Sex: Female
  Weight: 77.1 kg

DRUGS (4)
  1. ADVIL [Suspect]
     Active Substance: IBUPROFEN
     Indication: ILL-DEFINED DISORDER
  2. ADVIL [Suspect]
     Active Substance: IBUPROFEN
     Indication: PAIN IN EXTREMITY
  3. MELOXICAM. [Concomitant]
     Active Substance: MELOXICAM
     Indication: ARTHRITIS
     Dosage: 15 MG, ONCE A DAY
  4. ADVIL [Suspect]
     Active Substance: IBUPROFEN
     Indication: INSOMNIA
     Dosage: 200 MG, ONCE A DAY

REACTIONS (4)
  - Intentional product misuse [Unknown]
  - Fungal infection [Unknown]
  - Poor quality drug administered [Unknown]
  - Product physical issue [Unknown]
